FAERS Safety Report 7414850-0 (Version None)
Quarter: 2011Q2

REPORT INFORMATION
  Report Type: 
  Country: None (occurrence: None)
  Receive Date: 20110414
  Receipt Date: 20110405
  Transmission Date: 20111010
  Serious: Yes (Hospitalization, Other)
  Sender: FDA-Public Use
  Company Number: BR-ASTRAZENECA-2010SE55361

PATIENT
  Age: 86 Year
  Sex: Female
  Weight: 68 kg

DRUGS (9)
  1. PRESSAT [Concomitant]
     Indication: HYPERTENSION
     Route: 048
  2. ATACAND HCT [Suspect]
     Indication: HYPERTENSION
     Dosage: STRENGTH 16 + 12.5 MG
     Route: 048
     Dates: start: 20000101, end: 20101101
  3. OSCAL D [Concomitant]
     Indication: OSTEOPOROSIS
  4. CITALOPRAM HYDROBROMIDE [Concomitant]
     Route: 048
  5. OMEPRAZOLE [Concomitant]
  6. DOMPERIDONE [Concomitant]
  7. ATACAND [Suspect]
     Indication: HYPERTENSION
     Route: 048
     Dates: start: 20101101
  8. ALENDRONATE SODIUM [Concomitant]
     Indication: OSTEOPOROSIS
  9. DIGESAN [Concomitant]

REACTIONS (5)
  - DRUG INEFFECTIVE [None]
  - MYOCARDIAL INFARCTION [None]
  - WRONG DRUG ADMINISTERED [None]
  - DRUG DOSE OMISSION [None]
  - BLOOD PRESSURE INCREASED [None]
